FAERS Safety Report 5850821-3 (Version None)
Quarter: 2008Q3

REPORT INFORMATION
  Report Type: 
  Country: None (occurrence: None)
  Receive Date: 20080820
  Receipt Date: 20080808
  Transmission Date: 20090109
  Serious: No
  Sender: FDA-Public Use
  Company Number: KR-ELI_LILLY_AND_COMPANY-KR200808001479

PATIENT
  Age: 65 Year
  Sex: Male

DRUGS (4)
  1. CIALIS [Suspect]
     Indication: ERECTILE DYSFUNCTION
     Dosage: 20 MG, UNK
     Route: 048
  2. CIALIS [Suspect]
     Dosage: 30 MG, AS NEEDED
     Route: 048
     Dates: start: 20080805, end: 20080805
  3. ALFUZOSIN HCL [Concomitant]
     Indication: BENIGN PROSTATIC HYPERPLASIA
     Dosage: 10 MG, UNK
  4. ANTIDEPRESSANTS [Concomitant]

REACTIONS (8)
  - DRUG INEFFECTIVE [None]
  - EYELID OEDEMA [None]
  - FACE OEDEMA [None]
  - FLUSHING [None]
  - HEADACHE [None]
  - OVERDOSE [None]
  - PALPITATIONS [None]
  - VISION BLURRED [None]
